FAERS Safety Report 6110307-8 (Version None)
Quarter: 2009Q1

REPORT INFORMATION
  Report Type: 
  Country: None (occurrence: None)
  Receive Date: 20090310
  Receipt Date: 20090226
  Transmission Date: 20090719
  Serious: Yes (Other)
  Sender: FDA-Public Use
  Company Number: US-PFIZER INC-2009175903

PATIENT
  Sex: Female

DRUGS (1)
  1. ALDACTAZIDE [Suspect]

REACTIONS (4)
  - ALOPECIA [None]
  - GASTRIC NEOPLASM [None]
  - LIPOMA [None]
  - NEOPLASM SKIN [None]
